FAERS Safety Report 5472075-2 (Version None)
Quarter: 2007Q3

REPORT INFORMATION
  Report Type: 
  Country: None (occurrence: None)
  Receive Date: 20070928
  Receipt Date: 20070917
  Transmission Date: 20080115
  Serious: Yes (Other)
  Sender: FDA-Public Use
  Company Number: US-PFIZER INC-2007079635

PATIENT
  Sex: Female

DRUGS (1)
  1. CHANTIX [Suspect]

REACTIONS (6)
  - ASTHENIA [None]
  - BLINDNESS TRANSIENT [None]
  - DIPLOPIA [None]
  - DIZZINESS [None]
  - FALL [None]
  - VISUAL DISTURBANCE [None]
